FAERS Safety Report 7588764 (Version 3)
Quarter: 2013Q4

REPORT INFORMATION
  Report Type: Spontaneous
  Country: US (occurrence: US)
  Receive Date: 20100916
  Receipt Date: 20131212
  Transmission Date: 20140711
  Serious: Yes (Hospitalization, Other)
  Sender: FDA-Public Use
  Company Number: US-BAYER-201033409NA

PATIENT
  Age: 31 Year
  Sex: Female
  Weight: 51.7 kg

DRUGS (13)
  1. YASMIN [Suspect]
     Indication: PRODUCT USED FOR UNKNOWN INDICATION
     Dosage: UNK UNK, UNK
     Route: 048
     Dates: start: 20011108, end: 2009
  2. LEVAQUIN [Concomitant]
     Dosage: 500 MG, UNK
  3. ALPRAZOLAM [Concomitant]
     Dosage: 1 MG, UNK
  4. DIAZEPAM [Concomitant]
     Dosage: 5 MG, UNK
  5. PROPRANOLOL HYDROCHLORIDE [Concomitant]
     Dosage: 40 MG, UNK
  6. ZYPREXA [Concomitant]
     Dosage: 40 MG, UNK
  7. PREDNISONE [Concomitant]
     Dosage: 20 MG, UNK
  8. ENDOCET [Concomitant]
     Dosage: 10325 MG, UNK
  9. ADVAIR [Concomitant]
  10. ZOFRAN [Concomitant]
  11. REGLAN [Concomitant]
  12. DILAUDID [Concomitant]
  13. ULTRAM [Concomitant]

REACTIONS (5)
  - Gallbladder disorder [Unknown]
  - Cholecystitis chronic [None]
  - Abdominal pain upper [Unknown]
  - Vomiting [Unknown]
  - Gastrooesophageal reflux disease [Unknown]
